FAERS Safety Report 15104288 (Version 3)
Quarter: 2018Q3

REPORT INFORMATION
  Report Type: Report from Study
  Country: US (occurrence: US)
  Receive Date: 20180703
  Receipt Date: 20180824
  Transmission Date: 20181010
  Serious: Yes (Hospitalization)
  Sender: FDA-Public Use
  Company Number: US-ACTELION-A-US2018-174951

PATIENT
  Age: 73 Year
  Sex: Male
  Weight: 76.19 kg

DRUGS (2)
  1. ADEMPAS [Concomitant]
     Active Substance: RIOCIGUAT
  2. OPSUMIT [Suspect]
     Active Substance: MACITENTAN
     Indication: PULMONARY ARTERIAL HYPERTENSION
     Dosage: 10 MG, QD
     Route: 048

REACTIONS (3)
  - Cardiac operation [Unknown]
  - Pulmonary embolism [Recovering/Resolving]
  - Thromboembolectomy [Recovering/Resolving]

NARRATIVE: CASE EVENT DATE: 20180627
